FAERS Safety Report 5692836-4 (Version None)
Quarter: 2008Q2

REPORT INFORMATION
  Report Type: 
  Country: None (occurrence: None)
  Receive Date: 20080401
  Receipt Date: 20080219
  Transmission Date: 20081010
  Serious: Yes (Disabling)
  Sender: FDA-Public Use
  Company Number: 2008AL001750

PATIENT
  Age: 35 Year
  Sex: Female

DRUGS (3)
  1. FLUOXETINE [Suspect]
     Dosage: 20 MG; QD;
     Dates: start: 20070801
  2. MIRTAZAPINE [Suspect]
     Dosage: 30 MG; QD; PO
     Route: 048
     Dates: start: 20070301
  3. PAROXETINE HCL [Concomitant]

REACTIONS (5)
  - ANXIETY [None]
  - DEPRESSION [None]
  - DRUG INEFFECTIVE [None]
  - IMPAIRED WORK ABILITY [None]
  - PANIC REACTION [None]
